FAERS Safety Report 4648035-8 (Version None)
Quarter: 2005Q2

REPORT INFORMATION
  Report Type: 
  Country: None (occurrence: None)
  Receive Date: 20050331
  Receipt Date: 20041223
  Transmission Date: 20051028
  Serious: No
  Sender: FDA-Public Use
  Company Number: 04P-163-0284782-00

PATIENT
  Age: 71 Year
  Sex: Female
  Weight: 58.9676 kg

DRUGS (8)
  1. HUMIRA [Suspect]
     Indication: RHEUMATOID ARTHRITIS
     Dosage: 40 MG, 1 IN 2 WK, SUBCUTANEOUS; 40 MG, SUBCUTANEOUS
     Route: 058
     Dates: start: 20030101, end: 20041201
  2. HUMIRA [Suspect]
     Indication: RHEUMATOID ARTHRITIS
     Dosage: 40 MG, 1 IN 2 WK, SUBCUTANEOUS; 40 MG, SUBCUTANEOUS
     Route: 058
     Dates: start: 20050101
  3. IRBESARTAN [Concomitant]
  4. ATENOLOL [Concomitant]
  5. PREDNISONE TAB [Concomitant]
  6. OMEPRAZOLE [Concomitant]
  7. LOVASTATIN [Concomitant]
  8. ACTINEL [Concomitant]

REACTIONS (2)
  - ACNE [None]
  - PRURITUS [None]
